FAERS Safety Report 24766582 (Version 2)
Quarter: 2025Q1

REPORT INFORMATION
  Report Type: Spontaneous
  Country: MY (occurrence: MY)
  Receive Date: 20241223
  Receipt Date: 20250117
  Transmission Date: 20250408
  Serious: Yes (Hospitalization, Other)
  Sender: INCYTE
  Company Number: MY-INCYTE CORPORATION-2024IN013436

PATIENT

DRUGS (8)
  1. RUXOLITINIB [Suspect]
     Active Substance: RUXOLITINIB
     Indication: Myelofibrosis
     Dosage: 15 MILLIGRAM, BID
     Route: 048
     Dates: start: 20230227, end: 20241101
  2. RUXOLITINIB [Suspect]
     Active Substance: RUXOLITINIB
     Route: 048
     Dates: start: 20241120
  3. PELABRESIB [Suspect]
     Active Substance: PELABRESIB
     Indication: Myelofibrosis
     Dosage: 100 MILLIGRAM, QD
     Route: 048
     Dates: start: 20230227, end: 20241014
  4. PELABRESIB [Suspect]
     Active Substance: PELABRESIB
     Dosage: 100 MILLIGRAM, QD
     Route: 048
     Dates: start: 20230227, end: 20241014
  5. PELABRESIB [Suspect]
     Active Substance: PELABRESIB
     Route: 048
     Dates: start: 20241030, end: 20241101
  6. PELABRESIB [Suspect]
     Active Substance: PELABRESIB
     Route: 048
     Dates: start: 20241127
  7. TENOFOVIR DISOPROXIL FUMARATE [Concomitant]
     Active Substance: TENOFOVIR DISOPROXIL FUMARATE
     Indication: Product used for unknown indication
     Route: 065
     Dates: start: 20220727
  8. DEFERIPRONE [Concomitant]
     Active Substance: DEFERIPRONE
     Indication: Product used for unknown indication
     Route: 065

REACTIONS (2)
  - Pneumonia [Recovered/Resolved]
  - Sepsis [Recovered/Resolved]

NARRATIVE: CASE EVENT DATE: 20241014
